FAERS Safety Report 13078417 (Version 6)
Quarter: 2018Q2

REPORT INFORMATION
  Report Type: Spontaneous
  Country: US (occurrence: US)
  Receive Date: 20170102
  Receipt Date: 20180523
  Transmission Date: 20180711
  Serious: Yes (Other)
  Sender: FDA-Public Use
  Company Number: US-ASTRAZENECA-2016SF38061

PATIENT
  Age: 549 Month
  Sex: Female
  Weight: 63.5 kg

DRUGS (62)
  1. TAGRISSO [Suspect]
     Active Substance: OSIMERTINIB
     Indication: NON-SMALL CELL LUNG CANCER METASTATIC
     Route: 048
     Dates: start: 201609
  2. XANAX [Concomitant]
     Active Substance: ALPRAZOLAM
     Indication: PANIC ATTACK
     Dosage: 0.5MG AS REQUIRED
     Route: 048
     Dates: start: 2015
  3. TARCEVA [Concomitant]
     Active Substance: ERLOTINIB HYDROCHLORIDE
     Indication: NEOPLASM MALIGNANT
     Dosage: UNKNOWN
     Route: 065
  4. VITAMIN B COMPLEX [Concomitant]
     Active Substance: CYANOCOBALAMIN\DEXPANTHENOL\NIACINAMIDE\PYRIDOXINE HYDROCHLORIDE\RIBOFLAVIN 5^-PHOSPHATE SODIUM\THIAMINE HYDROCHLORIDE\VITAMIN B COMPLEX
     Dosage: UNKNOWN
     Route: 065
  5. MILK THISTLE [Concomitant]
     Active Substance: DIETARY SUPPLEMENT\HERBALS\MILK THISTLE
     Route: 048
     Dates: start: 20150629
  6. VITAMIN C [Concomitant]
     Active Substance: ASCORBIC ACID
     Route: 048
  7. VITAMIN B COMPLEX [Concomitant]
     Active Substance: CYANOCOBALAMIN\DEXPANTHENOL\NIACINAMIDE\PYRIDOXINE HYDROCHLORIDE\RIBOFLAVIN 5^-PHOSPHATE SODIUM\THIAMINE HYDROCHLORIDE\VITAMIN B COMPLEX
     Dates: start: 20150629
  8. PROVENTIL HFA [Concomitant]
     Active Substance: ALBUTEROL SULFATE
     Dates: start: 20150420
  9. RALOXIFENE HYDROCHLORIDE. [Concomitant]
     Active Substance: RALOXIFENE HYDROCHLORIDE
  10. TAGRISSO [Suspect]
     Active Substance: OSIMERTINIB
     Indication: LUNG CARCINOMA CELL TYPE UNSPECIFIED STAGE I
     Route: 048
     Dates: start: 20150422
  11. GABAPENTIN. [Concomitant]
     Active Substance: GABAPENTIN
     Indication: VESTIBULAR DISORDER
     Dosage: 800.0MG AS REQUIRED
     Route: 048
     Dates: start: 2016
  12. TOLTERODINE [Concomitant]
     Active Substance: TOLTERODINE
     Indication: URINARY INCONTINENCE
     Route: 048
     Dates: start: 201612
  13. L-LYSINE [Concomitant]
     Active Substance: LYSINE
     Dates: start: 20150629
  14. PROLIA [Concomitant]
     Active Substance: DENOSUMAB
     Dates: start: 20150629
  15. GUAIFENESIN. [Concomitant]
     Active Substance: GUAIFENESIN
  16. HYDROCODONE [Concomitant]
     Active Substance: HYDROCODONE
  17. AMITRIPTYLINE [Concomitant]
     Active Substance: AMITRIPTYLINE
     Indication: VESTIBULAR DISORDER
     Route: 048
  18. GABAPENTIN. [Concomitant]
     Active Substance: GABAPENTIN
     Indication: VESTIBULAR DISORDER
     Route: 048
     Dates: start: 201510
  19. ALBUTEROL SULFATE. [Concomitant]
     Active Substance: ALBUTEROL SULFATE
     Dosage: UNKNOWN
     Route: 065
     Dates: start: 20150629
  20. VITAMIN D3 [Concomitant]
     Active Substance: CHOLECALCIFEROL
     Dates: start: 20150629
  21. DUONEB [Concomitant]
     Active Substance: ALBUTEROL SULFATE\IPRATROPIUM BROMIDE
     Dates: start: 20150629
  22. IRON [Concomitant]
     Active Substance: IRON
     Dates: start: 20150629
  23. TAGRISSO [Suspect]
     Active Substance: OSIMERTINIB
     Indication: NON-SMALL CELL LUNG CANCER METASTATIC
     Route: 048
     Dates: start: 20170120
  24. GABAPENTIN. [Concomitant]
     Active Substance: GABAPENTIN
     Indication: VESTIBULAR DISORDER
     Route: 048
     Dates: start: 201512
  25. XANAX [Concomitant]
     Active Substance: ALPRAZOLAM
     Indication: PANIC ATTACK
     Dosage: AS REQUIRED
     Route: 048
     Dates: start: 20150916
  26. XGEVA [Concomitant]
     Active Substance: DENOSUMAB
     Indication: METASTASES TO BONE
     Dosage: EVERY SIX WEEKS
     Route: 030
     Dates: start: 20150629
  27. XGEVA [Concomitant]
     Active Substance: DENOSUMAB
     Indication: METASTASES TO BONE
     Dosage: EVERY SIX WEEKS
     Route: 030
     Dates: start: 2016
  28. COMBIVENT [Concomitant]
     Active Substance: ALBUTEROL SULFATE\IPRATROPIUM BROMIDE
     Route: 055
     Dates: start: 20150420
  29. GARLIC. [Concomitant]
     Active Substance: GARLIC
     Dates: start: 20150629
  30. TOLTERODINE L-TARTRATE [Concomitant]
     Active Substance: TOLTERODINE TARTRATE
     Route: 048
     Dates: start: 20170118
  31. QVAR [Concomitant]
     Active Substance: BECLOMETHASONE DIPROPIONATE
     Dates: start: 20150420, end: 20170118
  32. TAGRISSO [Suspect]
     Active Substance: OSIMERTINIB
     Indication: NON-SMALL CELL LUNG CANCER METASTATIC
     Route: 048
     Dates: start: 20150422
  33. HYDROCODONE BITARTRATE AND ACETAMINOPHEN [Concomitant]
     Active Substance: ACETAMINOPHEN\HYDROCODONE BITARTRATE
     Route: 048
     Dates: start: 20170118
  34. MELATONIN [Concomitant]
     Active Substance: MELATONIN
     Route: 048
     Dates: start: 20150629
  35. ZOFRAN [Concomitant]
     Active Substance: ONDANSETRON HYDROCHLORIDE
     Dates: start: 20150916
  36. DOXYCYCLINE MONOHYDRATE [Concomitant]
     Active Substance: DOXYCYCLINE
  37. NORTRIPTYLINE HYDROCHLORIDE. [Concomitant]
     Active Substance: NORTRIPTYLINE HYDROCHLORIDE
     Dates: start: 20170118
  38. NYSTATIN. [Concomitant]
     Active Substance: NYSTATIN
     Dates: start: 20150629
  39. POTASSIUM [Concomitant]
     Active Substance: POTASSIUM
     Dates: start: 20170118
  40. PROBIOTIC [Concomitant]
     Active Substance: PROBIOTICS NOS
     Dates: start: 20150629
  41. SINGULAIR [Concomitant]
     Active Substance: MONTELUKAST SODIUM
     Dates: start: 20150420, end: 20170118
  42. PROBIOTIC [Concomitant]
     Active Substance: PROBIOTICS NOS
  43. TAGRISSO [Suspect]
     Active Substance: OSIMERTINIB
     Indication: LUNG CARCINOMA CELL TYPE UNSPECIFIED STAGE I
     Route: 048
     Dates: start: 201609
  44. AMITRIPTYLINE [Concomitant]
     Active Substance: AMITRIPTYLINE
     Indication: VESTIBULAR DISORDER
     Route: 048
     Dates: end: 201611
  45. GABAPENTIN. [Concomitant]
     Active Substance: GABAPENTIN
     Indication: VESTIBULAR DISORDER
     Route: 048
     Dates: start: 2015
  46. GABAPENTIN. [Concomitant]
     Active Substance: GABAPENTIN
     Indication: VESTIBULAR DISORDER
     Dosage: 800.0MG AS REQUIRED
     Route: 048
     Dates: start: 20151231
  47. BACLOFEN. [Concomitant]
     Active Substance: BACLOFEN
     Indication: MUSCLE SPASMS
     Route: 048
     Dates: start: 20170118
  48. CALCIUM [Concomitant]
     Active Substance: CALCIUM
     Route: 048
     Dates: start: 20150629
  49. MULTI VITAMIN [Concomitant]
     Active Substance: VITAMINS
     Dates: start: 20150629
  50. FLOVENT [Concomitant]
     Active Substance: FLUTICASONE PROPIONATE
     Dates: start: 20170118
  51. CYMBALTA [Concomitant]
     Active Substance: DULOXETINE HYDROCHLORIDE
     Route: 048
     Dates: start: 20171026
  52. FLONASE [Concomitant]
     Active Substance: FLUTICASONE PROPIONATE
     Dates: start: 20150420, end: 20170118
  53. CHOLESTYRAMINE. [Concomitant]
     Active Substance: CHOLESTYRAMINE
  54. TAGRISSO [Suspect]
     Active Substance: OSIMERTINIB
     Indication: LUNG CARCINOMA CELL TYPE UNSPECIFIED STAGE I
     Route: 048
     Dates: start: 20170120
  55. NORTRIPTYLINE [Concomitant]
     Active Substance: NORTRIPTYLINE
     Indication: VESTIBULAR DISORDER
     Route: 048
     Dates: start: 201611
  56. BACLOFEN. [Concomitant]
     Active Substance: BACLOFEN
     Indication: MUSCLE SPASMS
     Route: 048
     Dates: start: 2015
  57. VALIUM [Concomitant]
     Active Substance: DIAZEPAM
     Indication: TINNITUS
     Dosage: 5.0MG AS REQUIRED
     Route: 048
     Dates: start: 2016
  58. XANAX [Concomitant]
     Active Substance: ALPRAZOLAM
     Indication: PANIC ATTACK
     Dosage: 0.25MG AS REQUIRED
     Route: 048
     Dates: start: 201508
  59. MAGNESIUM [Concomitant]
     Active Substance: MAGNESIUM
     Dates: start: 20150629
  60. PEPCID [Concomitant]
     Active Substance: FAMOTIDINE
  61. KEFLEX [Concomitant]
     Active Substance: CEPHALEXIN
  62. MECLIZINE [Concomitant]
     Active Substance: MECLIZINE HYDROCHLORIDE

REACTIONS (30)
  - Road traffic accident [Unknown]
  - Tooth disorder [Unknown]
  - Localised infection [Unknown]
  - Skin exfoliation [Unknown]
  - Jaw fracture [Unknown]
  - Muscle spasms [Unknown]
  - Head injury [Unknown]
  - Suicidal ideation [Unknown]
  - Dysphonia [Unknown]
  - Hand fracture [Unknown]
  - Sensory loss [Unknown]
  - Skin fissures [Unknown]
  - Tooth loss [Unknown]
  - Vth nerve injury [Unknown]
  - Cerebral disorder [Unknown]
  - Vertigo [Unknown]
  - Vestibular disorder [Unknown]
  - Trichorrhexis [Not Recovered/Not Resolved]
  - Drug dose omission [Unknown]
  - Weight increased [Not Recovered/Not Resolved]
  - Mass [Unknown]
  - Tooth injury [Unknown]
  - Back pain [Unknown]
  - Application site pustules [Recovering/Resolving]
  - Intervertebral disc protrusion [Unknown]
  - Tinnitus [Unknown]
  - Laceration [Unknown]
  - Face injury [Unknown]
  - Pain [Unknown]
  - Incontinence [Unknown]

NARRATIVE: CASE EVENT DATE: 201609
